FAERS Safety Report 5010301-4 (Version None)
Quarter: 2006Q2

REPORT INFORMATION
  Report Type: 
  Country: None (occurrence: None)
  Receive Date: 20060517
  Receipt Date: 20060503
  Transmission Date: 20061013
  Serious: Yes (Hospitalization)
  Sender: FDA-Public Use
  Company Number: WSDF_00545

PATIENT
  Age: 15 Year
  Sex: Female

DRUGS (5)
  1. WINRHO SDF [Suspect]
     Indication: IDIOPATHIC THROMBOCYTOPENIC PURPURA
     Dosage: 75 MCG/KG ONCE IV
     Route: 042
  2. WINRHO SDF [Suspect]
     Indication: IDIOPATHIC THROMBOCYTOPENIC PURPURA
  3. IMMUNE GLOBULIN INTRAVENOUS (HUMAN) [Concomitant]
  4. DIPHENHYDRAMINE HCL [Concomitant]
  5. ACETAMINOPHEN [Concomitant]

REACTIONS (2)
  - HAEMORRHAGE INTRACRANIAL [None]
  - THERAPY NON-RESPONDER [None]
